FAERS Safety Report 22017787 (Version 1)
Quarter: 2023Q1

REPORT INFORMATION
  Report Type: Spontaneous
  Country: GB (occurrence: GB)
  Receive Date: 20230221
  Receipt Date: 20230221
  Transmission Date: 20230418
  Serious: Yes (Other)
  Sender: FDA-Public Use
  Company Number: GB-ETHYPHARM-2023000283

PATIENT
  Age: 46 Year
  Sex: Female

DRUGS (2)
  1. METHYLPHENIDATE [Suspect]
     Active Substance: METHYLPHENIDATE
     Indication: Product used for unknown indication
     Dosage: UNK (MODIFIED RELEASE)
     Route: 065
  2. METHYLPHENIDATE [Suspect]
     Active Substance: METHYLPHENIDATE
     Indication: Product used for unknown indication
     Dosage: UNK (IMMEDIATE RELEASE)
     Route: 065

REACTIONS (3)
  - Hypomenorrhoea [Unknown]
  - Vaginal haemorrhage [Unknown]
  - Endometrial thickening [Unknown]
